FAERS Safety Report 21182639 (Version 1)
Quarter: 2022Q3

REPORT INFORMATION
  Report Type: Report from Study
  Country: US (occurrence: US)
  Receive Date: 20220808
  Receipt Date: 20220808
  Transmission Date: 20221026
  Serious: No
  Sender: FDA-Public Use
  Company Number: US-BIOVITRUM-2022US09186

PATIENT
  Age: 49 Year
  Sex: Female

DRUGS (1)
  1. KINERET [Suspect]
     Active Substance: ANAKINRA
     Dates: start: 201904

REACTIONS (4)
  - COVID-19 [Unknown]
  - Urinary tract infection [Unknown]
  - Sensitive skin [Unknown]
  - Injection site oedema [Unknown]

NARRATIVE: CASE EVENT DATE: 20220401
